FAERS Safety Report 10983995 (Version 1)
Quarter: 2015Q2

REPORT INFORMATION
  Report Type: Spontaneous
  Country: JP (occurrence: None)
  Receive Date: 20150401
  Receipt Date: 20150401
  Transmission Date: 20150821
  Serious: Yes (Hospitalization)
  Sender: FDA-Public Use
  Company Number: 2015SA028286

PATIENT
  Age: 60 Year
  Sex: Male

DRUGS (3)
  1. BCG FOR IMMUNOTHERAPY [Concomitant]
     Active Substance: BACILLUS CALMETTE-GUERIN ANTIGEN, UNSPECIFIED SUBSTRAIN
  2. IMMUNOBLADDER [Suspect]
     Active Substance: BACILLUS CALMETTE-GUERIN ANTIGEN, UNSPECIFIED SUBSTRAIN
     Indication: IMMUNISATION
     Dosage: INTRAVESICAL
  3. BCG FOR IMMUNOTHERAPY [Suspect]
     Active Substance: BACILLUS CALMETTE-GUERIN ANTIGEN, UNSPECIFIED SUBSTRAIN
     Indication: BLADDER CANCER
     Dosage: INTRAVESICAL

REACTIONS (4)
  - Renal tuberculosis [None]
  - Haematuria [None]
  - Renal haemorrhage [None]
  - Bladder tamponade [None]
